FAERS Safety Report 13106705 (Version 1)
Quarter: 2017Q1

REPORT INFORMATION
  Report Type: Report from Study
  Country: US (occurrence: US)
  Receive Date: 20170111
  Receipt Date: 20170111
  Transmission Date: 20170428
  Serious: Yes (Hospitalization)
  Sender: FDA-Public Use
  Company Number: US-JNJFOC-20170106147

PATIENT
  Sex: Male

DRUGS (1)
  1. STELARA [Suspect]
     Active Substance: USTEKINUMAB
     Indication: PSORIASIS
     Route: 058
     Dates: start: 2016

REACTIONS (5)
  - Pneumonia [Recovered/Resolved]
  - Multiple organ dysfunction syndrome [Recovered/Resolved]
  - Cardio-respiratory arrest [Recovered/Resolved]
  - Weight decreased [Not Recovered/Not Resolved]
  - Vascular graft [Unknown]

NARRATIVE: CASE EVENT DATE: 2016
